FAERS Safety Report 9928399 (Version 1)
Quarter: 2014Q1

REPORT INFORMATION
  Report Type: Spontaneous
  Country: US (occurrence: US)
  Receive Date: 20140227
  Receipt Date: 20140227
  Transmission Date: 20141002
  Serious: Yes (Hospitalization)
  Sender: FDA-Public Use
  Company Number: US-PFIZER INC-2014055688

PATIENT
  Age: 58 Year
  Sex: Female

DRUGS (1)
  1. CHANTIX [Suspect]
     Indication: SMOKING CESSATION THERAPY
     Dosage: UNK
     Dates: start: 2009

REACTIONS (7)
  - Tremor [Not Recovered/Not Resolved]
  - Nightmare [Unknown]
  - Memory impairment [Not Recovered/Not Resolved]
  - Frustration [Unknown]
  - Overdose [Unknown]
  - Feeling abnormal [Unknown]
  - Anger [Unknown]
